FAERS Safety Report 21269641 (Version 7)
Quarter: 2022Q4

REPORT INFORMATION
  Report Type: Report from Study
  Country: GB (occurrence: GB)
  Receive Date: 20220830
  Receipt Date: 20221004
  Transmission Date: 20230112
  Serious: Yes (Other)
  Sender: FDA-Public Use
  Company Number: GB-NOVARTISPH-NVSC2022GB193257

PATIENT
  Age: 29 Year
  Sex: Female

DRUGS (2)
  1. KESIMPTA [Suspect]
     Active Substance: OFATUMUMAB
     Indication: Relapsing multiple sclerosis
     Dosage: 20 MG, QW (INITIAL DOSING AT WEEKS 0, 1 AND 2, FOLLOWED BY SUBSEQUENT MONTHLY DOSING, STARTING AT WE
     Route: 058
     Dates: start: 20220824
  2. KESIMPTA [Suspect]
     Active Substance: OFATUMUMAB
     Indication: Multiple sclerosis
     Dosage: UNK (2 ND INJECTION)
     Route: 065

REACTIONS (10)
  - Hemiparesis [Recovering/Resolving]
  - Influenza like illness [Unknown]
  - Illness [Unknown]
  - Pyrexia [Unknown]
  - Chills [Unknown]
  - Flushing [Recovered/Resolved]
  - Headache [Recovered/Resolved]
  - Hemiplegic migraine [Unknown]
  - Adverse drug reaction [Not Recovered/Not Resolved]
  - Hypoaesthesia [Recovering/Resolving]

NARRATIVE: CASE EVENT DATE: 20220801
